FAERS Safety Report 10290255 (Version 2)
Quarter: 2014Q1

REPORT INFORMATION
  Report Type: Spontaneous
  Country: US (occurrence: None)
  Receive Date: 20120817
  Receipt Date: 20130815
  Transmission Date: 20141002
  Serious: Yes (Hospitalization, Other)
  Sender: FDA-Public Use
  Company Number: ADR-2012-00854

PATIENT
  Sex: Female

DRUGS (4)
  1. BACLOFEN [Suspect]
     Indication: PAIN
  2. BACLOFEN [Suspect]
     Indication: POST LAMINECTOMY SYNDROME
  3. BUPIVACAINE [Concomitant]
  4. MORPHINE [Concomitant]

REACTIONS (7)
  - Therapeutic response decreased [None]
  - Back pain [None]
  - Drug withdrawal syndrome [None]
  - Dehydration [None]
  - Diarrhoea [None]
  - Retching [None]
  - Influenza like illness [None]
